FAERS Safety Report 9214259 (Version 1)
Quarter: 2013Q2

REPORT INFORMATION
  Report Type: Spontaneous
  Country: US (occurrence: US)
  Receive Date: 20130405
  Receipt Date: 20130405
  Transmission Date: 20140414
  Serious: No
  Sender: FDA-Public Use
  Company Number: US-TEVA-392614USA

PATIENT
  Sex: Male

DRUGS (4)
  1. PROAIR HFA [Suspect]
     Indication: DYSPNOEA
     Dosage: EVERY 4 HOURS AS NEEDED
     Route: 055
     Dates: start: 20130118, end: 20130305
  2. SYMBICORT [Concomitant]
  3. SPIRIVA [Concomitant]
  4. PREDNISONE [Concomitant]

REACTIONS (1)
  - Throat irritation [Recovered/Resolved]
